FAERS Safety Report 9193034 (Version 1)
Quarter: 2013Q1

REPORT INFORMATION
  Report Type: Report from Study
  Country: CA (occurrence: CA)
  Receive Date: 20130327
  Receipt Date: 20130327
  Transmission Date: 20140127
  Serious: Yes (Death)
  Sender: FDA-Public Use
  Company Number: CA-SANOFI-AVENTIS-2013SA032339

PATIENT
  Sex: 0

DRUGS (4)
  1. OXALIPLATIN [Suspect]
     Indication: COLORECTAL CANCER
     Dosage: GIVEN ON DAY 1
     Route: 042
  2. CAPECITABINE [Suspect]
     Indication: COLORECTAL CANCER
     Dosage: GIVEN ON DAY 2-DAY 15
     Route: 048
  3. IRINOTECAN [Suspect]
     Indication: COLORECTAL CANCER
     Dosage: GIVEN ON DAY 1
     Route: 042
  4. BEVACIZUMAB [Suspect]
     Indication: COLORECTAL CANCER
     Dosage: GIVEN ON DAY 1
     Route: 042

REACTIONS (1)
  - Colitis [Fatal]
